FAERS Safety Report 16985140 (Version 1)
Quarter: 2019Q4

REPORT INFORMATION
  Report Type: Spontaneous
  Country: US (occurrence: US)
  Receive Date: 20191101
  Receipt Date: 20191101
  Transmission Date: 20200122
  Serious: Yes (Hospitalization, Other)
  Sender: FDA-Public Use
  Company Number: US-STRIDES ARCOLAB LIMITED-2019SP010677

PATIENT
  Age: 61 Year
  Sex: Male

DRUGS (2)
  1. VANCOMYCIN [Suspect]
     Active Substance: VANCOMYCIN
     Indication: PYREXIA
     Dosage: UNK
     Route: 065
  2. ZOSYN [Concomitant]
     Active Substance: PIPERACILLIN SODIUM\TAZOBACTAM SODIUM
     Indication: PYREXIA
     Dosage: UNK
     Route: 065

REACTIONS (10)
  - Melaena [Unknown]
  - Hypotension [Unknown]
  - Platelet destruction increased [Unknown]
  - Flank pain [Unknown]
  - Epistaxis [Unknown]
  - Thrombocytopenia [Recovered/Resolved]
  - Ecchymosis [Unknown]
  - Anaemia [Unknown]
  - Haemolysis [Unknown]
  - Dyspnoea [Unknown]
